FAERS Safety Report 13270282 (Version 3)
Quarter: 2017Q1

REPORT INFORMATION
  Report Type: Spontaneous
  Country: VN (occurrence: VN)
  Receive Date: 20170224
  Receipt Date: 20170310
  Transmission Date: 20170428
  Serious: Yes (Life-Threatening, Hospitalization, Other)
  Sender: FDA-Public Use
  Company Number: PHHY2017VN026324

PATIENT
  Age: 48 Year
  Sex: Male

DRUGS (2)
  1. VOLTAREN [Suspect]
     Active Substance: DICLOFENAC SODIUM
     Indication: ARTHRALGIA
     Dosage: UNK, QD
     Route: 030
     Dates: start: 20170214, end: 20170214
  2. VOLTAREN [Suspect]
     Active Substance: DICLOFENAC SODIUM
     Indication: BONE PAIN

REACTIONS (21)
  - Syncope [Recovered/Resolved]
  - Pruritus [Recovered/Resolved]
  - Haemoptysis [Recovered/Resolved]
  - Fatigue [Recovered/Resolved]
  - Pulmonary congestion [Unknown]
  - Respiratory arrest [Recovered/Resolved]
  - Skin oedema [Recovered/Resolved]
  - Rash [Recovered/Resolved]
  - Apparent death [Recovered/Resolved]
  - Anaphylactic reaction [Recovered/Resolved]
  - Cardiac arrest [Recovered/Resolved]
  - Dizziness [Recovered/Resolved]
  - Chest discomfort [Recovered/Resolved]
  - Nausea [Recovered/Resolved]
  - Dyspnoea [Recovered/Resolved]
  - Hypotension [Recovered/Resolved]
  - Eyelid oedema [Recovered/Resolved]
  - Lip swelling [Recovered/Resolved]
  - Generalised erythema [Recovered/Resolved]
  - Blood pressure immeasurable [Recovered/Resolved]
  - Vision blurred [Recovered/Resolved]

NARRATIVE: CASE EVENT DATE: 20170214
